FAERS Safety Report 7675352-X (Version None)
Quarter: 2011Q3

REPORT INFORMATION
  Report Type: 
  Country: None (occurrence: None)
  Receive Date: 20110810
  Receipt Date: 20110728
  Transmission Date: 20111222
  Serious: No
  Sender: FDA-Public Use
  Company Number: US-B.I. PHARMACEUTICALS,INC./RIDGEFIELD-2011-BP-18704BP

PATIENT
  Sex: Male

DRUGS (1)
  1. MIRAPEX [Suspect]

REACTIONS (2)
  - OBSESSIVE-COMPULSIVE DISORDER [None]
  - SUBSTANCE ABUSE [None]
